FAERS Safety Report 8827459 (Version 1)
Quarter: 2012Q4

REPORT INFORMATION
  Report Type: Report from Study
  Country: CA (occurrence: CA)
  Receive Date: 20121008
  Receipt Date: 20121008
  Transmission Date: 20130627
  Serious: Yes (Hospitalization, Other)
  Sender: FDA-Public Use
  Company Number: CA-JNJFOC-20120912112

PATIENT
  Age: 64 Year
  Sex: Female
  Weight: 73.6 kg

DRUGS (6)
  1. REMICADE [Suspect]
     Indication: PSORIATIC ARTHROPATHY
     Route: 042
     Dates: start: 20090109
  2. INSULIN [Concomitant]
     Route: 065
  3. BLOOD PRESSURE MEDICATION NOS [Concomitant]
     Route: 065
  4. PREVACID [Concomitant]
     Route: 065
  5. CALCIUM [Concomitant]
     Route: 065
  6. IRON [Concomitant]
     Route: 065

REACTIONS (2)
  - Cystitis [Unknown]
  - Pancreatitis [Unknown]
